FAERS Safety Report 20310621 (Version 1)
Quarter: 2022Q1

REPORT INFORMATION
  Report Type: Spontaneous
  Country: US (occurrence: US)
  Receive Date: 20220107
  Receipt Date: 20220107
  Transmission Date: 20220424
  Serious: Yes (Death, Other)
  Sender: FDA-Public Use
  Company Number: US-APOTEX-2022AP000019

PATIENT
  Age: 10 Year
  Sex: Female

DRUGS (1)
  1. SOTALOL [Suspect]
     Active Substance: SOTALOL
     Indication: Atrial tachycardia
     Dosage: 80 MILLIGRAM, BID (APPROXIMATELY 120 OR 123 MG/M^2/DAY)
     Route: 048

REACTIONS (2)
  - Cardiac arrest [Fatal]
  - Torsade de pointes [Fatal]
